FAERS Safety Report 6438647-3 (Version None)
Quarter: 2009Q4

REPORT INFORMATION
  Report Type: 
  Country: None (occurrence: None)
  Receive Date: 20091112
  Receipt Date: 20091030
  Transmission Date: 20100525
  Serious: Yes (Hospitalization)
  Sender: FDA-Public Use
  Company Number: DE-MYLANLABS-2009S1004310

PATIENT
  Age: 87 Year
  Sex: Female

DRUGS (7)
  1. CIPROFLOXACIN [Suspect]
     Indication: URINARY TRACT INFECTION
     Route: 048
     Dates: start: 20090115, end: 20090122
  2. CLONT [Suspect]
     Indication: CLOSTRIDIUM DIFFICILE COLITIS
     Route: 048
     Dates: start: 20090120, end: 20090201
  3. ACTRAPID HUMAN [Concomitant]
     Indication: TYPE 2 DIABETES MELLITUS
     Route: 058
  4. BISOHEXAL /00802602/ [Concomitant]
     Indication: TACHYARRHYTHMIA
     Route: 048
  5. DURAGESIC-100 [Concomitant]
     Indication: PAIN
     Route: 062
  6. NOVODIGAL [Concomitant]
     Indication: TACHYARRHYTHMIA
     Route: 048
  7. CLONT [Concomitant]
     Route: 048
     Dates: start: 20090120, end: 20090201

REACTIONS (3)
  - CLOSTRIDIUM TEST POSITIVE [None]
  - DIARRHOEA [None]
  - HAEMATEMESIS [None]
